FAERS Safety Report 25820579 (Version 3)
Quarter: 2025Q4

REPORT INFORMATION
  Report Type: Spontaneous
  Country: US (occurrence: US)
  Receive Date: 20250919
  Receipt Date: 20251021
  Transmission Date: 20260118
  Serious: Yes (Hospitalization)
  Sender: KARYOPHARM THERAPEUTICS
  Company Number: US-KARYOPHARM-2025KPT100740

PATIENT

DRUGS (21)
  1. SELINEXOR [Suspect]
     Active Substance: SELINEXOR
     Indication: Plasma cell myeloma
     Dosage: 100 MG WEEKLY
     Route: 048
     Dates: start: 20250901, end: 20250929
  2. SELINEXOR [Suspect]
     Active Substance: SELINEXOR
     Dosage: 80 MG WEEKLY
     Route: 048
     Dates: start: 2025
  3. ALBUTEROL SULFATE [Concomitant]
     Active Substance: ALBUTEROL SULFATE
  4. ATORVASTATIN [Concomitant]
     Active Substance: ATORVASTATIN
  5. DEXAMETHASONE [Concomitant]
     Active Substance: DEXAMETHASONE
  6. ENTRESTO [Concomitant]
     Active Substance: SACUBITRIL\VALSARTAN
  7. FINASTERIDE [Concomitant]
     Active Substance: FINASTERIDE
  8. FUROSEMIDE [Concomitant]
     Active Substance: FUROSEMIDE
  9. LEVOTHYROXINE [Concomitant]
     Active Substance: LEVOTHYROXINE
  10. METOPROLOL SUCCINATE [Concomitant]
     Active Substance: METOPROLOL SUCCINATE
  11. METFORMIN [Concomitant]
     Active Substance: METFORMIN HYDROCHLORIDE
  12. NYSTATIN [Concomitant]
     Active Substance: NYSTATIN
  13. ONDANSETRON [Concomitant]
     Active Substance: ONDANSETRON
  14. POTASSIUM CITRATE [Concomitant]
     Active Substance: POTASSIUM CITRATE
  15. SILVER SULFADIAZINE [Concomitant]
     Active Substance: SILVER SULFADIAZINE
  16. TAMSULOSIN [Concomitant]
     Active Substance: TAMSULOSIN
  17. TRADJENTA [Concomitant]
     Active Substance: LINAGLIPTIN
  18. XARELTO [Concomitant]
     Active Substance: RIVAROXABAN
  19. ACYCLOVIR [Concomitant]
     Active Substance: ACYCLOVIR
  20. LASIX [Concomitant]
     Active Substance: FUROSEMIDE
  21. ZOFRAN [Concomitant]
     Active Substance: ONDANSETRON HYDROCHLORIDE

REACTIONS (5)
  - Blood pressure decreased [Unknown]
  - Platelet count abnormal [Unknown]
  - Diarrhoea [Unknown]
  - Blood sodium decreased [Unknown]
  - Platelet count decreased [Unknown]

NARRATIVE: CASE EVENT DATE: 20250101
